FAERS Safety Report 25656140 (Version 1)
Quarter: 2025Q3

REPORT INFORMATION
  Report Type: Spontaneous
  Country: PR (occurrence: PR)
  Receive Date: 20250807
  Receipt Date: 20250807
  Transmission Date: 20251020
  Serious: No
  Sender: BIOGEN
  Company Number: PR-BIOGEN-2025BI01319460

PATIENT
  Age: 22 Year
  Sex: Female
  Weight: 88.984 kg

DRUGS (1)
  1. TYSABRI [Suspect]
     Active Substance: NATALIZUMAB
     Indication: Multiple sclerosis
     Route: 050
     Dates: start: 202507

REACTIONS (2)
  - Haemorrhage [Recovered/Resolved]
  - Skin laceration [Unknown]

NARRATIVE: CASE EVENT DATE: 20250731
